FAERS Safety Report 11271131 (Version 1)
Quarter: 2015Q3

REPORT INFORMATION
  Report Type: Spontaneous
  Country: US (occurrence: US)
  Receive Date: 20150714
  Receipt Date: 20150714
  Transmission Date: 20151125
  Serious: Yes (Other)
  Sender: FDA-Public Use
  Company Number: US-PFIZER INC-2015232188

PATIENT
  Age: 23 Year
  Sex: Male
  Weight: 172.34 kg

DRUGS (1)
  1. VIAGRA [Suspect]
     Active Substance: SILDENAFIL CITRATE
     Dosage: 100 MG, 2 AT TIME, EVERY 3 HOURS
     Dates: start: 20150708

REACTIONS (6)
  - Product label confusion [Unknown]
  - Extra dose administered [Unknown]
  - Paralysis [Not Recovered/Not Resolved]
  - Erection increased [Not Recovered/Not Resolved]
  - Feeling abnormal [Not Recovered/Not Resolved]
  - Headache [Not Recovered/Not Resolved]

NARRATIVE: CASE EVENT DATE: 20150708
